FAERS Safety Report 6075560-8 (Version None)
Quarter: 2009Q1

REPORT INFORMATION
  Report Type: 
  Country: None (occurrence: None)
  Receive Date: 20090210
  Receipt Date: 20090210
  Transmission Date: 20090719
  Serious: Yes (Life-Threatening, Hospitalization, Other)
  Sender: FDA-Public Use
  Company Number: None

PATIENT
  Age: 37 Year
  Sex: Female
  Weight: 52.1637 kg

DRUGS (3)
  1. OXYCODONE IMMEDIATE RELEASE 5MG ETHEX [Suspect]
     Indication: MYOFASCIAL PAIN SYNDROME
     Dosage: 1 TO 2 CAPSULES 2 TO 3 X DAILY PO
     Route: 048
     Dates: start: 20081117, end: 20090209
  2. OXYCODONE IMMEDIATE RELEASE 5MG ETHEX [Suspect]
     Indication: NECK INJURY
     Dosage: 1 TO 2 CAPSULES 2 TO 3 X DAILY PO
     Route: 048
     Dates: start: 20081117, end: 20090209
  3. OXYCODONE IMMEDIATE RELEASE 5MG ETHEX [Suspect]
     Indication: NECK PAIN
     Dosage: 1 TO 2 CAPSULES 2 TO 3 X DAILY PO
     Route: 048
     Dates: start: 20081117, end: 20090209

REACTIONS (15)
  - ACTIVITIES OF DAILY LIVING IMPAIRED [None]
  - ASTHENIA [None]
  - CHEST PAIN [None]
  - CONVULSION [None]
  - DEHYDRATION [None]
  - DIZZINESS [None]
  - DYSPNOEA [None]
  - HEART RATE IRREGULAR [None]
  - HYPOTENSION [None]
  - LETHARGY [None]
  - NAUSEA [None]
  - PRODUCT QUALITY ISSUE [None]
  - SYNCOPE [None]
  - VERTIGO [None]
  - VOMITING [None]
